FAERS Safety Report 4325700-3 (Version None)
Quarter: 2004Q1

REPORT INFORMATION
  Report Type: 
  Country: None (occurrence: None)
  Receive Date: 20040324
  Receipt Date: 20040308
  Transmission Date: 20041129
  Serious: Yes (Other)
  Sender: FDA-Public Use
  Company Number: USA040361267

PATIENT
  Age: 14 Year
  Sex: Male

DRUGS (3)
  1. STRATTERA [Suspect]
  2. ABILIFY [Concomitant]
  3. CELEXA [Concomitant]

REACTIONS (1)
  - ELECTROCARDIOGRAM QT CORRECTED INTERVAL PROLONGED [None]
